FAERS Safety Report 16753267 (Version 2)
Quarter: 2019Q4

REPORT INFORMATION
  Report Type: Spontaneous
  Country: GB (occurrence: GB)
  Receive Date: 20190829
  Receipt Date: 20191012
  Transmission Date: 20200122
  Serious: Yes (Other)
  Sender: FDA-Public Use
  Company Number: GB-ACCORD-151473

PATIENT
  Age: 25 Year
  Sex: Male

DRUGS (1)
  1. QUETIAPINE. [Suspect]
     Active Substance: QUETIAPINE
     Indication: PSYCHOTIC DISORDER
     Dosage: 200 MG ON (AT NIGHT) ONLY (CONVERTED TO MODIFIED RELEASE FORM )

REACTIONS (1)
  - Retrograde ejaculation [Recovered/Resolved]
